FAERS Safety Report 6526654-1 (Version None)
Quarter: 2010Q1

REPORT INFORMATION
  Report Type: 
  Country: None (occurrence: None)
  Receive Date: 20100105
  Receipt Date: 20091228
  Transmission Date: 20100710
  Serious: Yes (Other)
  Sender: FDA-Public Use
  Company Number: ES-ASTRAZENECA-2009AC01364

PATIENT
  Sex: Female
  Weight: 73 kg

DRUGS (8)
  1. SEROQUEL XR [Suspect]
     Route: 048
  2. SEROQUEL XR [Suspect]
     Route: 048
  3. LITHIUM CARBONATE [Concomitant]
  4. VALPROIC ACID [Concomitant]
  5. DIAZEPAM [Concomitant]
  6. VALPROATE SODIUM [Concomitant]
  7. LORMETAZEPAM [Concomitant]
  8. SUMIAL [Concomitant]

REACTIONS (2)
  - CONFUSIONAL STATE [None]
  - FLUID RETENTION [None]
